FAERS Safety Report 8508193-1 (Version None)
Quarter: 2012Q3

REPORT INFORMATION
  Report Type: 
  Country: None (occurrence: None)
  Receive Date: 20120713
  Receipt Date: 20070226
  Transmission Date: 20120928
  Serious: Yes (Other)
  Sender: FDA-Public Use
  Company Number: CO-PFIZER INC-2012168028

PATIENT
  Age: 63 Year
  Sex: Female

DRUGS (5)
  1. LIPITOR [Suspect]
     Dosage: 10 MG, EVERY 24 HOURS
  2. LIPITOR [Suspect]
     Dosage: 20 MG, EVERY 24 HOURS
  3. OLMESARTAN MEDOXOMIL AND HYDROCHLOROTHIZIDE [Suspect]
     Dosage: [OLMESARTAN MEDOXOMIL 20 MG]/ [HYDROCHLOROTHIAZIDE 12.5 MG] EVERY 24 HOURS
  4. ACURETIC [Suspect]
     Dosage: [QUINAPRIL HCL 20 MG]/ [HYDROCHLOROTHIAZIDE 12.5MG] EVERY 24 HOURS
  5. ACETYLSALICYLIC ACID [Concomitant]
     Dosage: 100 MG EVERY 24 HOURS

REACTIONS (6)
  - INTERMITTENT CLAUDICATION [None]
  - ABDOMINAL PAIN UPPER [None]
  - HYPERTENSIVE EMERGENCY [None]
  - MYOCARDIAL ISCHAEMIA [None]
  - DYSPNOEA [None]
  - INFLUENZA [None]
